FAERS Safety Report 18658604 (Version 4)
Quarter: 2021Q4

REPORT INFORMATION
  Report Type: Report from Study
  Country: FR (occurrence: FR)
  Receive Date: 20201223
  Receipt Date: 20211006
  Transmission Date: 20220303
  Serious: Yes (Death, Life-Threatening, Hospitalization, Other)
  Sender: FDA-Public Use
  Company Number: FR-002147023-NVSC2020FR175477

PATIENT

DRUGS (3)
  1. RUXOLITINIB [Suspect]
     Active Substance: RUXOLITINIB
     Indication: Primary myelofibrosis
     Dosage: 20 MG DAILY
     Route: 048
     Dates: start: 20200304, end: 20200616
  2. RUXOLITINIB [Suspect]
     Active Substance: RUXOLITINIB
     Dosage: 30 MG DAILY
     Route: 048
     Dates: start: 20200617, end: 20201025
  3. RUXOLITINIB [Suspect]
     Active Substance: RUXOLITINIB
     Dosage: 20 MG DAILY
     Route: 048
     Dates: start: 20201026

REACTIONS (10)
  - General physical health deterioration [Fatal]
  - Pulmonary embolism [Fatal]
  - Dyspnoea [Fatal]
  - Pyrexia [Fatal]
  - General physical condition abnormal [Fatal]
  - Multiple organ dysfunction syndrome [Fatal]
  - Pneumocystis jirovecii pneumonia [Fatal]
  - Lung disorder [Fatal]
  - Anaemia [Recovering/Resolving]
  - Weight increased [Unknown]

NARRATIVE: CASE EVENT DATE: 20200519
